FAERS Safety Report 9435241 (Version 1)
Quarter: 2013Q3

REPORT INFORMATION
  Report Type: Spontaneous
  Country: US (occurrence: US)
  Receive Date: 20130801
  Receipt Date: 20130801
  Transmission Date: 20140515
  Serious: No
  Sender: FDA-Public Use
  Company Number: US-PFIZER INC-2013223190

PATIENT
  Age: 65 Year
  Sex: Male
  Weight: 97.51 kg

DRUGS (2)
  1. VIAGRA [Suspect]
     Indication: SEXUAL DYSFUNCTION
     Dosage: 100 MG, AS NEEDED
     Route: 048
  2. LOTREL [Concomitant]
     Indication: HYPERTENSION
     Dosage: 1 DF (5/40 MG), 1X/DAY

REACTIONS (1)
  - Drug ineffective [Unknown]
